FAERS Safety Report 17950608 (Version 6)
Quarter: 2020Q3

REPORT INFORMATION
  Report Type: Spontaneous
  Country: US (occurrence: US)
  Receive Date: 20200626
  Receipt Date: 20200814
  Transmission Date: 20201103
  Serious: Yes (Hospitalization, Other)
  Sender: FDA-Public Use
  Company Number: US-MALLINCKRODT-T202002915

PATIENT
  Age: 0 Year
  Sex: Male
  Weight: 7 kg

DRUGS (4)
  1. PHENOBARBITAL. [Concomitant]
     Active Substance: PHENOBARBITAL
     Indication: PRODUCT USED FOR UNKNOWN INDICATION
     Dosage: UNK
     Route: 065
     Dates: start: 2020
  2. H.P. ACTHAR [Suspect]
     Active Substance: CORTICOTROPIN
     Dosage: 0.8 MILLILITER, QD FOR 13 DAYS
     Route: 030
     Dates: start: 20200707, end: 20200731
  3. H.P. ACTHAR [Suspect]
     Active Substance: CORTICOTROPIN
     Indication: INFANTILE SPASMS
     Dosage: 0.8 MILLILITER, QD FOR 14 DAYS
     Route: 030
     Dates: start: 20200612, end: 202006
  4. H.P. ACTHAR [Suspect]
     Active Substance: CORTICOTROPIN
     Dosage: 07 MILLILITER, UNK
     Route: 065
     Dates: start: 202006, end: 202007

REACTIONS (14)
  - Eating disorder [Unknown]
  - Somnolence [Unknown]
  - Vomiting [Not Recovered/Not Resolved]
  - Mobility decreased [Unknown]
  - Insomnia [Unknown]
  - Crying [Unknown]
  - Clonic convulsion [Not Recovered/Not Resolved]
  - Blood glucose decreased [Unknown]
  - Irritability [Unknown]
  - Therapeutic product effect incomplete [Not Recovered/Not Resolved]
  - Lethargy [Unknown]
  - Hypertension [Unknown]
  - Aspiration [Not Recovered/Not Resolved]
  - Flatulence [Not Recovered/Not Resolved]

NARRATIVE: CASE EVENT DATE: 2020
